FAERS Safety Report 4304738-6 (Version None)
Quarter: 2004Q1

REPORT INFORMATION
  Report Type: 
  Country: None (occurrence: None)
  Receive Date: 20040226
  Receipt Date: 20031125
  Transmission Date: 20041129
  Serious: No
  Sender: FDA-Public Use
  Company Number: US-GLAXOSMITHKLINE-A0441117A

PATIENT
  Age: 44 Year
  Sex: Female

DRUGS (5)
  1. WELLBUTRIN [Suspect]
     Indication: DEPRESSION
     Dosage: 1TAB PER DAY
     Route: 048
     Dates: start: 20031121
  2. PREVACID [Concomitant]
  3. ZYRTEC [Concomitant]
  4. VIOXX [Concomitant]
  5. MULTI-VITAMIN [Concomitant]

REACTIONS (2)
  - ARTHRALGIA [None]
  - BLOOD PRESSURE INCREASED [None]
